FAERS Safety Report 9703961 (Version 3)
Quarter: 2013Q4

REPORT INFORMATION
  Report Type: Spontaneous
  Country: US (occurrence: US)
  Receive Date: 20131122
  Receipt Date: 20131224
  Transmission Date: 20140711
  Serious: Yes (Other)
  Sender: FDA-Public Use
  Company Number: PHEH2013US024265

PATIENT
  Sex: Female

DRUGS (6)
  1. DIOVAN [Suspect]
     Indication: HYPERTENSION
     Dosage: 320 MG, QD
     Route: 048
     Dates: start: 20130516
  2. HYDROCHLOROTHIAZIDE [Suspect]
     Indication: HYPERTENSION
     Dosage: 25 MG, QD
     Route: 048
     Dates: start: 20130516
  3. IBUPROFEN [Interacting]
     Indication: BACK PAIN
     Dosage: 600 MG, QD
     Route: 048
     Dates: start: 20130715
  4. IBUPROFEN [Interacting]
     Dosage: 800 MG, QD
     Route: 048
  5. HYDROCODONE [Suspect]
     Indication: BACK PAIN
     Dosage: 325 UKN, DAILY
     Route: 048
     Dates: start: 20131111
  6. MULTI-VIT [Concomitant]

REACTIONS (5)
  - Eye swelling [Unknown]
  - Blood pressure increased [Unknown]
  - Headache [Unknown]
  - Abdominal discomfort [Unknown]
  - Drug ineffective [Unknown]
